FAERS Safety Report 23239084 (Version 1)
Quarter: 2023Q4

REPORT INFORMATION
  Report Type: Spontaneous
  Country: PT (occurrence: PT)
  Receive Date: 20231129
  Receipt Date: 20231129
  Transmission Date: 20240110
  Serious: Yes (Death, Hospitalization, Other)
  Sender: FDA-Public Use
  Company Number: PT-IPCA LABORATORIES LIMITED-IPC-2018-PT-002545

PATIENT

DRUGS (33)
  1. GABAPENTIN [Suspect]
     Active Substance: GABAPENTIN
     Indication: Central pain syndrome
     Dosage: 400 MG, TID
     Route: 065
  2. GABAPENTIN [Suspect]
     Active Substance: GABAPENTIN
     Dosage: 1600 MG, QD
     Route: 065
     Dates: start: 200202
  3. GABAPENTIN [Suspect]
     Active Substance: GABAPENTIN
     Dosage: 2400 MG, QD
     Route: 065
     Dates: start: 200402
  4. GABAPENTIN [Suspect]
     Active Substance: GABAPENTIN
     Dosage: 800 MG, QD
     Route: 065
     Dates: start: 200709
  5. GABAPENTIN [Suspect]
     Active Substance: GABAPENTIN
     Dosage: 1200 MG, QD
     Route: 065
  6. GABAPENTIN [Suspect]
     Active Substance: GABAPENTIN
     Dosage: 300 MG, BID
     Route: 065
     Dates: start: 201201
  7. ACETAMINOPHEN [Suspect]
     Active Substance: ACETAMINOPHEN
     Indication: Central pain syndrome
     Dosage: 1 G, TID
     Route: 065
  8. TRAMADOL HYDROCHLORIDE [Suspect]
     Active Substance: TRAMADOL HYDROCHLORIDE
     Indication: Central pain syndrome
     Dosage: 200 MILLIGRAM, BID
     Route: 065
  9. AMITRIPTYLINE [Suspect]
     Active Substance: AMITRIPTYLINE
     Indication: Central pain syndrome
     Dosage: 25 MILLIGRAM, QD
     Route: 065
  10. AMITRIPTYLINE [Suspect]
     Active Substance: AMITRIPTYLINE
     Dosage: 50 MILLIGRAM, QD
     Route: 065
  11. LOPINAVIR\RITONAVIR [Suspect]
     Active Substance: LOPINAVIR\RITONAVIR
     Indication: Antiretroviral therapy
     Dosage: UNK
     Route: 065
  12. LOPINAVIR\RITONAVIR [Suspect]
     Active Substance: LOPINAVIR\RITONAVIR
     Indication: HIV infection
  13. LAMIVUDINE [Suspect]
     Active Substance: LAMIVUDINE
     Indication: Product used for unknown indication
     Dosage: UNK
     Route: 065
  14. LAMIVUDINE [Suspect]
     Active Substance: LAMIVUDINE
     Indication: HIV infection
  15. STAVUDINE [Suspect]
     Active Substance: STAVUDINE
     Indication: HIV infection
     Dosage: UNK
     Route: 065
  16. BACLOFEN [Suspect]
     Active Substance: BACLOFEN
     Indication: Muscle spasticity
     Dosage: 10 MG, QD
     Route: 065
  17. BACLOFEN [Suspect]
     Active Substance: BACLOFEN
     Indication: Musculoskeletal stiffness
     Dosage: 20 MILLIGRAM, QD
     Route: 065
  18. BACLOFEN [Suspect]
     Active Substance: BACLOFEN
     Indication: Central pain syndrome
  19. PYRIMETHAMINE [Concomitant]
     Active Substance: PYRIMETHAMINE
     Indication: Toxoplasmosis
     Dosage: UNK
     Route: 065
  20. SULFADIAZINE [Concomitant]
     Active Substance: SULFADIAZINE
     Indication: Toxoplasmosis
     Dosage: UNK
     Route: 065
  21. LEUCOVORIN [Concomitant]
     Active Substance: LEUCOVORIN\LEUCOVORIN CALCIUM
     Indication: Toxoplasmosis
     Dosage: UNK
     Route: 065
  22. AMITRIPTYLINE [Concomitant]
     Active Substance: AMITRIPTYLINE
     Indication: Pain
     Dosage: 50 MG, QD
     Route: 065
  23. AMITRIPTYLINE [Concomitant]
     Active Substance: AMITRIPTYLINE
     Dosage: 25 MG, QD
     Route: 065
  24. TRAMADOL [Concomitant]
     Active Substance: TRAMADOL\TRAMADOL HYDROCHLORIDE
     Indication: Pain
     Dosage: 100 MG, BID
     Route: 065
  25. TRAMADOL [Concomitant]
     Active Substance: TRAMADOL\TRAMADOL HYDROCHLORIDE
     Dosage: 200 MG, BID
     Route: 065
  26. TENOFOVIR [Concomitant]
     Active Substance: TENOFOVIR
     Indication: Acquired immunodeficiency syndrome
     Dosage: UNK
     Route: 065
  27. BUPRENORPHINE [Concomitant]
     Active Substance: BUPRENORPHINE
     Indication: Central pain syndrome
     Dosage: 35 DOSAGE FORM
     Route: 062
  28. VENLAFAXINE [Concomitant]
     Active Substance: VENLAFAXINE HYDROCHLORIDE
     Indication: Central pain syndrome
     Dosage: 75 MG, QD
     Route: 065
     Dates: start: 200709
  29. CLONAZEPAM [Concomitant]
     Active Substance: CLONAZEPAM
     Indication: Central pain syndrome
     Dosage: 0.25 MG, BID
     Route: 065
     Dates: start: 201201
  30. MIRTAZAPINE [Concomitant]
     Active Substance: MIRTAZAPINE
     Indication: Pain
     Dosage: 15 MG, QD
     Route: 065
     Dates: start: 201201
  31. MIRTAZAPINE [Concomitant]
     Active Substance: MIRTAZAPINE
     Indication: Central pain syndrome
  32. LOPINAVIR [Concomitant]
     Active Substance: LOPINAVIR
     Indication: Acquired immunodeficiency syndrome
     Dosage: UNK
     Route: 065
  33. RITONAVIR [Concomitant]
     Active Substance: RITONAVIR
     Indication: Acquired immunodeficiency syndrome
     Dosage: UNK
     Route: 065

REACTIONS (33)
  - Coagulopathy [Fatal]
  - Pancytopenia [Fatal]
  - Hepatic failure [Fatal]
  - Portal hypertension [Fatal]
  - Gastrointestinal haemorrhage [Fatal]
  - Encephalopathy [Fatal]
  - Liver disorder [Fatal]
  - Ascites [Fatal]
  - Renal failure [Recovering/Resolving]
  - Dizziness [Unknown]
  - Somnolence [Unknown]
  - Drug intolerance [Unknown]
  - Pain [Unknown]
  - Pain [Unknown]
  - Musculoskeletal stiffness [Unknown]
  - Paraesthesia [Unknown]
  - Discomfort [Unknown]
  - Electric shock [Unknown]
  - Muscle spasticity [Unknown]
  - Vomiting [Unknown]
  - Hemiplegia [Unknown]
  - Product use in unapproved indication [Unknown]
  - Central pain syndrome [Unknown]
  - Allodynia [Unknown]
  - Facial pain [Unknown]
  - Dysaesthesia [Unknown]
  - Nephropathy [Unknown]
  - Condition aggravated [Unknown]
  - Renal impairment [Unknown]
  - Neuralgia [Unknown]
  - Hypoaesthesia [Unknown]
  - Nasopharyngitis [Unknown]
  - CD4 lymphocytes decreased [Unknown]
